FAERS Safety Report 11924435 (Version 1)
Quarter: 2016Q1

REPORT INFORMATION
  Report Type: Report from Study
  Country: US (occurrence: US)
  Receive Date: 20160118
  Receipt Date: 20160118
  Transmission Date: 20160526
  Serious: Yes (Hospitalization)
  Sender: FDA-Public Use
  Company Number: US-SIGMA-TAU US-2015STPI000523

PATIENT
  Age: 41 Year
  Sex: Male
  Weight: 109.1 kg

DRUGS (14)
  1. ABELCET [Suspect]
     Active Substance: AMPHOTERICIN B\DIMYRISTOYLPHOSPHATIDYLCHOLINE, DL-\DIMYRISTOYLPHOSPHATIDYLGLYCEROL, DL-
     Dosage: 450 MG, QD
     Route: 042
     Dates: start: 20150720, end: 20150721
  2. CYTARABINE. [Suspect]
     Active Substance: CYTARABINE
     Indication: ACUTE MYELOID LEUKAEMIA
     Dosage: 3000 MG/M2, QC
     Route: 042
     Dates: start: 20150629, end: 20150704
  3. SGN-CD33A (H2H12EC-SGD-1910) [Suspect]
     Active Substance: VADASTUXIMAB TALIRINE
     Indication: ACUTE MYELOID LEUKAEMIA
     Dosage: UNK
     Dates: start: 20150629, end: 20150629
  4. VALACYCLOVIR HYDROCHLORIDE. [Concomitant]
     Active Substance: VALACYCLOVIR HYDROCHLORIDE
  5. OXYCODONE HYDROCHLORIDE. [Concomitant]
     Active Substance: OXYCODONE HYDROCHLORIDE
  6. CIPROFLOXACIN. [Concomitant]
     Active Substance: CIPROFLOXACIN
  7. VANCOMYCIN [Suspect]
     Active Substance: VANCOMYCIN
     Indication: FEBRILE NEUTROPENIA
     Dosage: 1.5 G, Q12H
     Route: 042
     Dates: start: 20150716
  8. CEFEPIME [Suspect]
     Active Substance: CEFEPIME HYDROCHLORIDE
     Indication: FEBRILE NEUTROPENIA
     Dosage: 2 G, Q8H
     Route: 042
     Dates: start: 20150716
  9. NEULASTA [Concomitant]
     Active Substance: PEGFILGRASTIM
  10. ABELCET [Suspect]
     Active Substance: AMPHOTERICIN B\DIMYRISTOYLPHOSPHATIDYLCHOLINE, DL-\DIMYRISTOYLPHOSPHATIDYLGLYCEROL, DL-
     Indication: FUSARIUM INFECTION
     Dosage: 550 MG, QD
     Route: 042
     Dates: start: 20150718, end: 20150719
  11. VORICONAZOLE. [Concomitant]
     Active Substance: VORICONAZOLE
  12. LORAZEPAM. [Concomitant]
     Active Substance: LORAZEPAM
  13. MIRTAZAPINE. [Concomitant]
     Active Substance: MIRTAZAPINE
  14. METHYLPHENIDATE. [Concomitant]
     Active Substance: METHYLPHENIDATE

REACTIONS (14)
  - Staphylococcal skin infection [None]
  - Pain [None]
  - Drug level above therapeutic [None]
  - Acute kidney injury [Recovered/Resolved]
  - Dermatitis [None]
  - Pyrexia [None]
  - Endocarditis [None]
  - Febrile neutropenia [None]
  - Glucose urine present [None]
  - Staphylococcus test positive [None]
  - Eye haemorrhage [None]
  - Thrombocytopenia [None]
  - Fusarium infection [None]
  - Retinal exudates [None]

NARRATIVE: CASE EVENT DATE: 20150721
